FAERS Safety Report 12064610 (Version 1)
Quarter: 2016Q1

REPORT INFORMATION
  Report Type: Report from Study
  Country: US (occurrence: US)
  Receive Date: 20160210
  Receipt Date: 20160210
  Transmission Date: 20160526
  Serious: No
  Sender: FDA-Public Use
  Company Number: US-AMGEN-USASL2016013237

PATIENT
  Age: 69 Year
  Sex: Female

DRUGS (4)
  1. ENBREL [Suspect]
     Active Substance: ETANERCEPT
     Indication: RHEUMATOID ARTHRITIS
     Dosage: 25 MG, 2 TIMES/WK
     Route: 065
     Dates: start: 1999
  2. FOSAMAX [Concomitant]
     Active Substance: ALENDRONATE SODIUM
     Dosage: UNK
     Route: 065
  3. METHOTREXATE [Suspect]
     Active Substance: METHOTREXATE
     Indication: PRODUCT USED FOR UNKNOWN INDICATION
     Dosage: UNK
     Route: 065
  4. FOLIC ACID. [Concomitant]
     Active Substance: FOLIC ACID
     Dosage: UNK
     Route: 065

REACTIONS (10)
  - Injection site reaction [Unknown]
  - Rash pruritic [Unknown]
  - Herpes zoster [Unknown]
  - Pain of skin [Unknown]
  - Hypergammaglobulinaemia benign monoclonal [Unknown]
  - Local swelling [Unknown]
  - Rash papular [Unknown]
  - Hypothyroidism [Unknown]
  - Dry skin [Unknown]
  - Skin warm [Unknown]

NARRATIVE: CASE EVENT DATE: 2013
